FAERS Safety Report 5385079-5 (Version None)
Quarter: 2007Q3

REPORT INFORMATION
  Report Type: 
  Country: None (occurrence: None)
  Receive Date: 20070710
  Receipt Date: 20070710
  Transmission Date: 20080115
  Serious: Yes (Hospitalization)
  Sender: FDA-Public Use
  Company Number: None

PATIENT
  Age: 73 Year
  Sex: Male
  Weight: 92.1 kg

DRUGS (2)
  1. ZOMETA [Suspect]
     Indication: PROSTATE CANCER
     Dosage: 4 MG QMONTH X6 IV
     Route: 042
     Dates: start: 20070319
  2. LUPRON [Suspect]
     Dosage: 22.5 MG Q3 MOS IM
     Route: 030
     Dates: start: 20070416

REACTIONS (1)
  - BACK PAIN [None]
